FAERS Safety Report 13354338 (Version 1)
Quarter: 2017Q1

REPORT INFORMATION
  Report Type: Spontaneous
  Country: None (occurrence: US)
  Receive Date: 20170318
  Receipt Date: 20170318
  Transmission Date: 20170429
  Serious: Yes (Hospitalization)
  Sender: FDA-Public Use
  Company Number: None

PATIENT
  Age: 57 Year
  Sex: Female
  Weight: 58.1 kg

DRUGS (14)
  1. SYNTHROID [Concomitant]
     Active Substance: LEVOTHYROXINE SODIUM
  2. VITAMIN D3 [Concomitant]
     Active Substance: CHOLECALCIFEROL
  3. DOXIL [Suspect]
     Active Substance: DOXORUBICIN HYDROCHLORIDE
     Dates: end: 20170222
  4. ALLEGRA [Concomitant]
     Active Substance: FEXOFENADINE HYDROCHLORIDE
  5. PRILOSEC [Concomitant]
     Active Substance: OMEPRAZOLE MAGNESIUM
  6. VITAMIN C [Concomitant]
     Active Substance: ASCORBIC ACID
  7. COMPAZINE [Concomitant]
     Active Substance: PROCHLORPERAZINE MALEATE
  8. ESTRACE [Concomitant]
     Active Substance: ESTRADIOL
  9. LYSENE [Concomitant]
  10. MULTI HERB [Concomitant]
  11. WELLBUTRIN [Concomitant]
     Active Substance: BUPROPION HYDROCHLORIDE
  12. ZOFRAN [Concomitant]
     Active Substance: ONDANSETRON HYDROCHLORIDE
  13. MAGNESIUM [Concomitant]
     Active Substance: MAGNESIUM
  14. VITAMIN B [Concomitant]
     Active Substance: VITAMIN B

REACTIONS (2)
  - Disease progression [None]
  - Intestinal perforation [None]

NARRATIVE: CASE EVENT DATE: 20170306
